FAERS Safety Report 5268520-8 (Version None)
Quarter: 2007Q1

REPORT INFORMATION
  Report Type: 
  Country: None (occurrence: None)
  Receive Date: 20070313
  Receipt Date: 20070228
  Transmission Date: 20070707
  Serious: Yes (Hospitalization, Other)
  Sender: FDA-Public Use
  Company Number: 2006BI018585

PATIENT
  Age: 52 Year
  Sex: Female

DRUGS (5)
  1. AVONEX [Suspect]
     Indication: MULTIPLE SCLEROSIS
     Dosage: 33 UG;QW;IM
     Route: 030
     Dates: start: 20030423
  2. AVONEX [Suspect]
     Indication: MULTIPLE SCLEROSIS
     Dosage: 33 UG; QW; IM
     Route: 030
  3. LIPITOR [Concomitant]
  4. AMANTADINE HCL [Concomitant]
  5. OXYBUTYNIN CHLORIDE [Concomitant]

REACTIONS (6)
  - CYSTITIS [None]
  - HAEMATOCRIT DECREASED [None]
  - HYPOAESTHESIA [None]
  - INCOHERENT [None]
  - KIDNEY INFECTION [None]
  - PROGRESSIVE MULTIPLE SCLEROSIS [None]
